FAERS Safety Report 6188584-7 (Version None)
Quarter: 2009Q2

REPORT INFORMATION
  Report Type: 
  Country: None (occurrence: None)
  Receive Date: 20090513
  Receipt Date: 20090504
  Transmission Date: 20091009
  Serious: Yes (Death)
  Sender: FDA-Public Use
  Company Number: A0782354A

PATIENT
  Age: 82 Year
  Sex: Male

DRUGS (2)
  1. ADVAIR HFA [Suspect]
     Indication: CHRONIC OBSTRUCTIVE PULMONARY DISEASE
     Route: 055
  2. DIALYSIS [Concomitant]

REACTIONS (3)
  - DISEASE PROGRESSION [None]
  - HAEMODIALYSIS [None]
  - REFUSAL OF TREATMENT BY PATIENT [None]
